FAERS Safety Report 15636275 (Version 1)
Quarter: 2018Q4

REPORT INFORMATION
  Report Type: Spontaneous
  Country: US (occurrence: US)
  Receive Date: 20181114
  Receipt Date: 20181114
  Transmission Date: 20190205
  Serious: Yes (Hospitalization)
  Sender: FDA-Public Use
  Company Number: None

PATIENT
  Age: 14 Year
  Sex: Male

DRUGS (5)
  1. IRON [Concomitant]
     Active Substance: IRON
  2. ZARXIO [Suspect]
     Active Substance: FILGRASTIM-SNDZ
     Dosage: 300 UG QOD PRN SUBCUTANEOUS?
     Route: 058
     Dates: start: 20181027
  3. TYLENOL [Concomitant]
     Active Substance: ACETAMINOPHEN
  4. SIRILIMUS [Concomitant]
  5. AMITRIPTYLIN [Concomitant]
     Active Substance: AMITRIPTYLINE

REACTIONS (3)
  - Vomiting [None]
  - Migraine [None]
  - Diarrhoea [None]

NARRATIVE: CASE EVENT DATE: 20181027
